FAERS Safety Report 25441453 (Version 1)
Quarter: 2025Q2

REPORT INFORMATION
  Report Type: Spontaneous
  Country: TR (occurrence: TR)
  Receive Date: 20250616
  Receipt Date: 20250616
  Transmission Date: 20250716
  Serious: Yes (Other)
  Sender: ALEXION PHARMACEUTICALS
  Company Number: TR-ASTRAZENECA-202506TUR006394TR

PATIENT
  Weight: 58 kg

DRUGS (3)
  1. SYMBICORT [Suspect]
     Active Substance: BUDESONIDE\FORMOTEROL FUMARATE DIHYDRATE
  2. Risonel [Concomitant]
     Route: 065
  3. DULOXETINE [Concomitant]
     Active Substance: DULOXETINE
     Route: 065

REACTIONS (5)
  - Pulmonary congestion [Unknown]
  - Wheezing [Unknown]
  - Drug ineffective [Unknown]
  - Device malfunction [Unknown]
  - Drug dose omission by device [Unknown]
